FAERS Safety Report 20052726 (Version 1)
Quarter: 2021Q4

REPORT INFORMATION
  Report Type: Spontaneous
  Country: US (occurrence: US)
  Receive Date: 20211110
  Receipt Date: 20211110
  Transmission Date: 20220303
  Serious: No
  Sender: FDA-Public Use
  Company Number: US-LEO Pharma-338789

PATIENT
  Age: 72 Year
  Sex: Female

DRUGS (2)
  1. FINACEA [Suspect]
     Active Substance: AZELAIC ACID
     Indication: Rosacea
  2. MELOXICAM [Concomitant]
     Active Substance: MELOXICAM
     Indication: Back pain

REACTIONS (1)
  - Skin burning sensation [Unknown]
